FAERS Safety Report 14822103 (Version 2)
Quarter: 2018Q3

REPORT INFORMATION
  Report Type: Spontaneous
  Country: DE (occurrence: DE)
  Receive Date: 20180427
  Receipt Date: 20180726
  Transmission Date: 20181010
  Serious: Yes (Other)
  Sender: FDA-Public Use
  Company Number: DE-PFIZER INC-2018166739

PATIENT
  Sex: Male

DRUGS (6)
  1. CLOMIPRAMINE [Suspect]
     Active Substance: CLOMIPRAMINE
     Indication: OBSESSIVE-COMPULSIVE DISORDER
     Dosage: 300 MG DAILY
     Route: 048
     Dates: start: 1995, end: 2015
  2. VENLAFAXINE HCL [Suspect]
     Active Substance: VENLAFAXINE HYDROCHLORIDE
     Dosage: 225 MG, 1X/DAY
     Route: 065
  3. VENLAFAXINE HCL [Suspect]
     Active Substance: VENLAFAXINE HYDROCHLORIDE
     Dosage: 75 MG, 1X/DAY
     Route: 065
  4. VENLAFAXINE HCL [Suspect]
     Active Substance: VENLAFAXINE HYDROCHLORIDE
     Indication: OBSESSIVE-COMPULSIVE DISORDER
     Dosage: 300 MG DAILY
     Route: 048
  5. VENLAFAXINE HCL [Suspect]
     Active Substance: VENLAFAXINE HYDROCHLORIDE
     Dosage: 150 MG, 1X/DAY
     Route: 065
  6. MILNACIPRAN [Suspect]
     Active Substance: MILNACIPRAN
     Dosage: 25 MG, 1X/DAY
     Route: 065

REACTIONS (12)
  - Libido decreased [Recovering/Resolving]
  - Affective disorder [Recovering/Resolving]
  - Constipation [Recovered/Resolved]
  - Disturbance in attention [Recovering/Resolving]
  - Influenza like illness [Recovered/Resolved]
  - Sleep disorder [Recovering/Resolving]
  - Hyperhidrosis [Recovered/Resolved]
  - Major depression [Not Recovered/Not Resolved]
  - Product use in unapproved indication [Not Recovered/Not Resolved]
  - Listless [Recovering/Resolving]
  - Language disorder [Recovered/Resolved]
  - Micturition frequency decreased [Recovering/Resolving]
